FAERS Safety Report 21758977 (Version 1)
Quarter: 2022Q4

REPORT INFORMATION
  Report Type: Report from Study
  Country: US (occurrence: US)
  Receive Date: 20221221
  Receipt Date: 20221221
  Transmission Date: 20230113
  Serious: No
  Sender: FDA-Public Use
  Company Number: US-ABBVIE-22K-163-4251221-00

PATIENT
  Sex: Female

DRUGS (4)
  1. SKYRIZI [Suspect]
     Active Substance: RISANKIZUMAB-RZAA
     Indication: Psoriasis
     Dosage: TIME INTERVAL: 1 TOTAL: WEEK 0?FORM STRENGTH- 150MG
     Route: 058
     Dates: start: 20211213
  2. SKYRIZI [Suspect]
     Active Substance: RISANKIZUMAB-RZAA
     Dosage: TIME INTERVAL: 1 TOTAL: WEEK 4?FORM STRENGTH- 150MG
     Route: 058
     Dates: start: 202201
  3. SKYRIZI [Suspect]
     Active Substance: RISANKIZUMAB-RZAA
     Dosage: FORM STRENGTH- 150MG
     Route: 058
  4. SKYRIZI [Suspect]
     Active Substance: RISANKIZUMAB-RZAA
     Dosage: FORM STRENGTH- 150MG
     Route: 058

REACTIONS (6)
  - Psoriasis [Not Recovered/Not Resolved]
  - Hyperhidrosis [Unknown]
  - Feeling hot [Unknown]
  - Migraine [Unknown]
  - Pain [Unknown]
  - Drug ineffective [Unknown]

NARRATIVE: CASE EVENT DATE: 20220101
